FAERS Safety Report 8821547 (Version 1)
Quarter: 2012Q4

REPORT INFORMATION
  Report Type: 
  Country: CN (occurrence: CN)
  Receive Date: 20121002
  Receipt Date: 20121002
  Transmission Date: 20130627
  Serious: Yes (Hospitalization)
  Sender: FDA-Public Use
  Company Number: CN-PFIZER INC-2012242489

PATIENT
  Age: 2 Year
  Sex: Male

DRUGS (1)
  1. IBUPROFEN [Suspect]
     Indication: PYREXIA
     Dosage: 50 mg, 2.5 ml 1x/day
     Route: 048
     Dates: start: 20100531, end: 20100531

REACTIONS (2)
  - Respiratory disorder [Recovering/Resolving]
  - Anaphylactic shock [Recovering/Resolving]
